FAERS Safety Report 4280518-5 (Version None)
Quarter: 2004Q1

REPORT INFORMATION
  Report Type: 
  Country: None (occurrence: None)
  Receive Date: 20040128
  Receipt Date: 20040128
  Transmission Date: 20041129
  Serious: Yes (Hospitalization, Congenital Anomaly)
  Sender: FDA-Public Use
  Company Number: None

PATIENT
  Age: 25 Year
  Sex: Male
  Weight: 86.1834 kg

DRUGS (1)
  1. TEQUIN [Suspect]
     Indication: PROSTATITIS
     Dosage: 400 MG DAILY ORAL
     Route: 048
     Dates: start: 20030305, end: 20040405

REACTIONS (1)
  - MUSCLE CRAMP [None]
